FAERS Safety Report 25953445 (Version 1)
Quarter: 2025Q4

REPORT INFORMATION
  Report Type: Spontaneous
  Country: US (occurrence: None)
  Receive Date: 20251023
  Receipt Date: 20251023
  Transmission Date: 20260118
  Serious: Yes (Death)
  Sender: FDA-CTU
  Company Number: None

PATIENT
  Age: 29 Year
  Sex: Male

DRUGS (1)
  1. DUPIXENT [Suspect]
     Active Substance: DUPILUMAB
     Indication: Asthma
     Dosage: OTHER QUANTITY : 300/2 ML;?OTHER FREQUENCY : 14 DAYS;?
     Route: 058
     Dates: start: 20240522

REACTIONS (1)
  - Death [None]

NARRATIVE: CASE EVENT DATE: 20251007
